FAERS Safety Report 5777615-1 (Version None)
Quarter: 2008Q2

REPORT INFORMATION
  Report Type: 
  Country: None (occurrence: None)
  Receive Date: 20080618
  Receipt Date: 20080609
  Transmission Date: 20081010
  Serious: Yes (Hospitalization)
  Sender: FDA-Public Use
  Company Number: US-WYE-H02670108

PATIENT
  Sex: Female
  Weight: 104.24 kg

DRUGS (16)
  1. PREMPRO [Suspect]
     Indication: HORMONE REPLACEMENT THERAPY
     Dosage: NOT PROVIDED
     Dates: start: 19970101, end: 20070601
  2. PREMPRO [Suspect]
     Dosage: LOW DOSE
     Dates: start: 20070601, end: 20070701
  3. CELEBREX [Suspect]
     Indication: PAIN
     Dosage: NOT PROVIDED
     Dates: end: 20070701
  4. SYNTHROID [Concomitant]
     Indication: HYPOTHYROIDISM
     Dosage: NOT PROVIDED
  5. PRAVASTATIN [Concomitant]
     Indication: BLOOD CHOLESTEROL INCREASED
     Dosage: 60 MG
     Dates: start: 20000101
  6. TRICOR [Concomitant]
     Indication: HYPERLIPIDAEMIA
     Dosage: 145 MG
  7. COZAAR [Concomitant]
     Indication: HYPERTENSION
     Dosage: NOT PROVIDED
     Dates: start: 19970101
  8. SEROQUEL [Concomitant]
     Indication: SLEEP DISORDER
     Dosage: NOT PROVIDED
  9. WELLBUTRIN [Concomitant]
     Indication: MULTIPLE SCLEROSIS
     Dosage: NOT PROVIDED
     Dates: end: 20070701
  10. DILTIAZEM [Concomitant]
     Indication: HYPERTENSION
     Dosage: NOT PROVIDED
     Dates: start: 19970101, end: 20070701
  11. ZETIA [Concomitant]
     Indication: HYPERLIPIDAEMIA
     Dosage: 10 MG
  12. REBIF [Suspect]
     Indication: MULTIPLE SCLEROSIS
     Dosage: 44 MCGS, THREE TIMES PER WEEK
     Route: 058
     Dates: start: 20061122, end: 20080301
  13. REBIF [Suspect]
     Dosage: 44 MCG, THREE TIMES A WEEK
     Route: 058
     Dates: start: 20080501
  14. REBIF [Suspect]
     Dosage: 44 MCG, THREE TIMES A WEEK
     Route: 058
     Dates: start: 20080301, end: 20080401
  15. IBUROFEN [Concomitant]
     Indication: BONE PAIN
     Dosage: NOT PROVIDED
  16. IBUROFEN [Concomitant]
     Indication: MYALGIA

REACTIONS (5)
  - ACUTE MYOCARDIAL INFARCTION [None]
  - CORONARY ARTERY OCCLUSION [None]
  - EAR PAIN [None]
  - SINUSITIS [None]
  - STENT OCCLUSION [None]
